FAERS Safety Report 8763054 (Version 1)
Quarter: 2012Q4

REPORT INFORMATION
  Report Type: Spontaneous
  Country: CA (occurrence: None)
  Receive Date: 20120830
  Receipt Date: 20120830
  Transmission Date: 20130627
  Serious: Yes (Other)
  Sender: FDA-Public Use
  Company Number: None

PATIENT
  Age: 43 Year
  Sex: Male
  Weight: 45 kg

DRUGS (1)
  1. MINOXIDIL FOR MEN [Suspect]
     Dates: start: 20110415, end: 20120801

REACTIONS (4)
  - Alopecia [None]
  - Pruritus [None]
  - Libido decreased [None]
  - Depression [None]
